FAERS Safety Report 13996498 (Version 1)
Quarter: 2017Q3

REPORT INFORMATION
  Report Type: Spontaneous
  Country: US (occurrence: US)
  Receive Date: 20170921
  Receipt Date: 20170921
  Transmission Date: 20171128
  Serious: No
  Sender: FDA-Public Use
  Company Number: US-TEVA-750267ACC

PATIENT
  Age: 66 Year
  Sex: Male

DRUGS (1)
  1. CARVEDILOL. [Suspect]
     Active Substance: CARVEDILOL
     Indication: HYPERTENSION
     Dates: start: 2017

REACTIONS (3)
  - Headache [Recovered/Resolved]
  - Drug ineffective [Unknown]
  - Blood pressure increased [Not Recovered/Not Resolved]

NARRATIVE: CASE EVENT DATE: 2017
